FAERS Safety Report 19540592 (Version 3)
Quarter: 2022Q4

REPORT INFORMATION
  Report Type: Spontaneous
  Country: US (occurrence: US)
  Receive Date: 20210713
  Receipt Date: 20221109
  Transmission Date: 20230112
  Serious: Yes (Other)
  Sender: FDA-Public Use
  Company Number: US-PFIZER INC-2020513414

PATIENT
  Age: 44 Year
  Sex: Male
  Weight: 81.646 kg

DRUGS (1)
  1. BENEFIX [Suspect]
     Active Substance: COAGULATION FACTOR IX RECOMBINANT HUMAN\ISOPROPYL ALCOHOL
     Indication: Haemorrhage
     Dosage: 8250 IU (8250 IU (10010/KG)(+/-1010) AS NEEDED EVERY 12-2 HOURS FOR BLEEDING EPISODES)

REACTIONS (2)
  - Injury [Unknown]
  - Accident [Unknown]
